FAERS Safety Report 4548415-5 (Version None)
Quarter: 2004Q4

REPORT INFORMATION
  Report Type: 
  Country: None (occurrence: None)
  Receive Date: 20041227
  Receipt Date: 20041012
  Transmission Date: 20050328
  Serious: Yes (Hospitalization)
  Sender: FDA-Public Use
  Company Number: 04P-163-0276958-00

PATIENT
  Age: 72 Year
  Sex: Male
  Weight: 65.7716 kg

DRUGS (2)
  1. HUMIRA [Suspect]
     Indication: ANKYLOSING SPONDYLITIS
     Dosage: 40 MG , 1 IN 2 W, SUBCUTANEOUS
     Route: 058
     Dates: start: 20040826, end: 20040826
  2. HUMIRA [Suspect]
     Indication: RHEUMATOID ARTHRITIS
     Dosage: 40 MG , 1 IN 2 W, SUBCUTANEOUS
     Route: 058
     Dates: start: 20040826, end: 20040826

REACTIONS (1)
  - URINARY TRACT INFECTION [None]
